FAERS Safety Report 5726265-1 (Version None)
Quarter: 2008Q2

REPORT INFORMATION
  Report Type: 
  Country: None (occurrence: None)
  Receive Date: 20080501
  Receipt Date: 20080501
  Transmission Date: 20081010
  Serious: Yes (Other)
  Sender: FDA-Public Use
  Company Number: None

PATIENT
  Age: 54 Year
  Sex: Female
  Weight: 107 kg

DRUGS (1)
  1. ONDANSETRON HYDROCHLORIDE 4MG/2ML [Suspect]
     Indication: NAUSEA
     Dosage: 4MG ONCE IV BOLUS
     Route: 040
     Dates: start: 20080430, end: 20080430

REACTIONS (10)
  - BLOOD PRESSURE INCREASED [None]
  - BODY TEMPERATURE DECREASED [None]
  - DYSPNOEA [None]
  - GRAND MAL CONVULSION [None]
  - LIP SWELLING [None]
  - MUSCLE TWITCHING [None]
  - SWELLING FACE [None]
  - THROAT TIGHTNESS [None]
  - TREMOR [None]
  - WHEEZING [None]
